FAERS Safety Report 4577384-7 (Version None)
Quarter: 2005Q1

REPORT INFORMATION
  Report Type: 
  Country: None (occurrence: None)
  Receive Date: 20050210
  Receipt Date: 20050204
  Transmission Date: 20050727
  Serious: Yes (Hospitalization)
  Sender: FDA-Public Use
  Company Number: FR-GLAXOSMITHKLINE-B0370714A

PATIENT
  Sex: Male

DRUGS (1)
  1. CLAMOXYL [Suspect]
     Indication: GASTRIC ULCER HELICOBACTER
     Route: 065

REACTIONS (6)
  - FATIGUE [None]
  - NIGHTMARE [None]
  - PYREXIA [None]
  - RASH [None]
  - RASH GENERALISED [None]
  - SLEEP DISORDER [None]
